FAERS Safety Report 6274995-8 (Version None)
Quarter: 2009Q3

REPORT INFORMATION
  Report Type: 
  Country: None (occurrence: None)
  Receive Date: 20090717
  Receipt Date: 20090708
  Transmission Date: 20100115
  Serious: Yes (Death)
  Sender: FDA-Public Use
  Company Number: GXKR2009GB07056

PATIENT
  Age: 69 Year
  Sex: Male

DRUGS (5)
  1. CIPROFLOXACIN [Suspect]
     Indication: BACTERAEMIA
     Dosage: ORAL
     Route: 048
  2. CEFTAZIDIME [Suspect]
     Indication: BACTERAEMIA
  3. SULFAMETHOXAZOLE AND TRIMETHOPRIM [Suspect]
     Indication: BACTERAEMIA
     Dosage: INTRAVENOUS
     Route: 042
  4. ERTAPENEM (ERTAPENEM) [Suspect]
     Indication: BACTERAEMIA
     Dosage: INTRAVENOUS
     Route: 042
  5. TIGECYCLINE (TIGECYCLINE) [Suspect]
     Indication: BACTERAEMIA
     Dosage: INTRAVENOUS
     Route: 042

REACTIONS (19)
  - BACTERAEMIA [None]
  - CHILLS [None]
  - DISEASE PROGRESSION [None]
  - ENDOCARDITIS [None]
  - ENDOTRACHEAL INTUBATION [None]
  - GENERAL PHYSICAL HEALTH DETERIORATION [None]
  - HEART VALVE REPLACEMENT [None]
  - HEPATIC INFARCTION [None]
  - INTESTINAL ISCHAEMIA [None]
  - LIVER ABSCESS [None]
  - MULTI-ORGAN FAILURE [None]
  - PATHOGEN RESISTANCE [None]
  - PYREXIA [None]
  - RENAL ABSCESS [None]
  - RENAL INFARCT [None]
  - RESPIRATORY FAILURE [None]
  - SPLENIC ABSCESS [None]
  - SPLENIC INFARCTION [None]
  - SPUTUM RETENTION [None]
